FAERS Safety Report 9996200 (Version 1)
Quarter: 2014Q1

REPORT INFORMATION
  Report Type: Spontaneous
  Country: US (occurrence: None)
  Receive Date: 20140310
  Receipt Date: 20140310
  Transmission Date: 20141002
  Serious: Yes (Hospitalization)
  Sender: FDA-Public Use
  Company Number: None

PATIENT
  Age: 10 Year
  Sex: Female
  Weight: 35 kg

DRUGS (2)
  1. MERCAPTOPURINE [Suspect]
     Dates: end: 20140206
  2. METHOTREXATE [Suspect]
     Dates: end: 20140227

REACTIONS (13)
  - Pyrexia [None]
  - Vomiting [None]
  - Diarrhoea [None]
  - Abdominal pain [None]
  - Musculoskeletal pain [None]
  - Cough [None]
  - Dehydration [None]
  - Liver injury [None]
  - Pneumonia [None]
  - Influenza [None]
  - Chest pain [None]
  - Alanine aminotransferase increased [None]
  - Aspartate aminotransferase increased [None]
